FAERS Safety Report 5245094-9 (Version None)
Quarter: 2007Q1

REPORT INFORMATION
  Report Type: 
  Country: None (occurrence: None)
  Receive Date: 20070223
  Receipt Date: 20070215
  Transmission Date: 20070707
  Serious: Yes (Hospitalization)
  Sender: FDA-Public Use
  Company Number: CH-AVENTIS-200710792EU

PATIENT
  Age: 83 Year
  Sex: Female

DRUGS (7)
  1. LASIX [Suspect]
     Indication: DRUG USE FOR UNKNOWN INDICATION
     Route: 048
     Dates: end: 20060917
  2. FLUDEX                             /00340101/ [Suspect]
     Indication: DRUG USE FOR UNKNOWN INDICATION
     Route: 048
     Dates: end: 20060917
  3. TEGRETOL [Suspect]
     Indication: DRUG USE FOR UNKNOWN INDICATION
     Route: 048
  4. CALPEROS D3 [Concomitant]
     Dosage: DOSE: 1DF
  5. MYSOLINE [Concomitant]
     Dosage: DOSE: 1 DF
     Route: 048
  6. ASPIRIN [Concomitant]
     Dosage: DOSE: 1DF
     Route: 048
  7. DUPHALAC                           /00163401/ [Concomitant]
     Route: 048

REACTIONS (10)
  - ATRIOVENTRICULAR BLOCK FIRST DEGREE [None]
  - DEHYDRATION [None]
  - DIZZINESS [None]
  - HYPOKALAEMIA [None]
  - HYPONATRAEMIA [None]
  - NAUSEA [None]
  - SOMNOLENCE [None]
  - VERTIGO [None]
  - VESTIBULAR DISORDER [None]
  - VOMITING [None]
